FAERS Safety Report 7957637-2 (Version None)
Quarter: 2011Q4

REPORT INFORMATION
  Report Type: 
  Country: None (occurrence: None)
  Receive Date: 20111201
  Receipt Date: 20111116
  Transmission Date: 20120403
  Serious: Yes (Other)
  Sender: FDA-Public Use
  Company Number: FK201102735

PATIENT
  Age: 32 Year
  Sex: Female

DRUGS (2)
  1. OXYTOCIN [Suspect]
     Indication: PRODUCT USED FOR UNKNOWN INDICATION
     Dosage: 2 USP UNITS, INTRAVENOUS (NOT OTHERWISE SPECIFIED)
     Route: 042
  2. METHYLERGOMETRINE (METHYLERGOMETRINE) (METHYLERGOMETRINE) [Suspect]
     Indication: ANAESTHESIA
     Dosage: 0.2 MG, INTRAMUSCULAR
     Route: 030

REACTIONS (10)
  - PROCEDURAL HAEMORRHAGE [None]
  - AIR EMBOLISM [None]
  - MATERNAL EXPOSURE DURING DELIVERY [None]
  - PROCEDURAL HYPOTENSION [None]
  - PLATELET COUNT DECREASED [None]
  - IATROGENIC INJURY [None]
  - HAEMOGLOBIN DECREASED [None]
  - CAESAREAN SECTION [None]
  - PREMATURE SEPARATION OF PLACENTA [None]
  - ACTIVATED PARTIAL THROMBOPLASTIN TIME PROLONGED [None]
